FAERS Safety Report 17950963 (Version 1)
Quarter: 2020Q2

REPORT INFORMATION
  Report Type: Spontaneous
  Country: FR (occurrence: FR)
  Receive Date: 20200626
  Receipt Date: 20200626
  Transmission Date: 20200714
  Serious: Yes (Other)
  Sender: FDA-Public Use
  Company Number: FR-GLAXOSMITHKLINE-FR2020EME107405

PATIENT
  Sex: Male

DRUGS (2)
  1. AMPICILLINE (AMPICILLIN TRIHYDRATE) [Suspect]
     Active Substance: AMPICILLIN TRIHYDRATE
     Indication: PRODUCT USED FOR UNKNOWN INDICATION
     Dosage: UNK
  2. CEFUROXIME. [Suspect]
     Active Substance: CEFUROXIME
     Indication: PRODUCT USED FOR UNKNOWN INDICATION
     Dosage: UNK

REACTIONS (3)
  - Chromaturia [Unknown]
  - Cholestasis [Unknown]
  - Jaundice [Unknown]
